FAERS Safety Report 24450766 (Version 1)
Quarter: 2024Q4

REPORT INFORMATION
  Report Type: Report from Study
  Country: BR (occurrence: BR)
  Receive Date: 20241017
  Receipt Date: 20241017
  Transmission Date: 20250115
  Serious: Yes (Other)
  Sender: JOHNSON AND JOHNSON
  Company Number: BR-JNJFOC-20241035629

PATIENT
  Age: 62 Year
  Sex: Female
  Weight: 69 kg

DRUGS (5)
  1. INFLIXIMAB [Suspect]
     Active Substance: INFLIXIMAB
     Indication: Crohn^s disease
     Route: 041
  2. INFLIXIMAB [Suspect]
     Active Substance: INFLIXIMAB
     Indication: Crohn^s disease
     Route: 041
  3. REMICADE [Suspect]
     Active Substance: INFLIXIMAB
     Indication: Crohn^s disease
     Route: 041
  4. LEVOCETIRIZINE DIHYDROCHLORIDE [Concomitant]
     Active Substance: LEVOCETIRIZINE DIHYDROCHLORIDE
  5. PREDNISONE [Concomitant]
     Active Substance: PREDNISONE

REACTIONS (9)
  - Proctocolectomy [Unknown]
  - Crohn^s disease [Not Recovered/Not Resolved]
  - Feeling hot [Unknown]
  - Erythema [Unknown]
  - Hypersensitivity [Unknown]
  - Infection [Unknown]
  - Dyspnoea [Unknown]
  - Off label use [Unknown]
  - Infusion related reaction [Unknown]

NARRATIVE: CASE EVENT DATE: 20200101
